FAERS Safety Report 17678302 (Version 6)
Quarter: 2020Q2

REPORT INFORMATION
  Report Type: Spontaneous
  Country: CA (occurrence: CA)
  Receive Date: 20200417
  Receipt Date: 20200614
  Transmission Date: 20200714
  Serious: Yes (Other)
  Sender: FDA-Public Use
  Company Number: CA-CELLTRION INC.-2019CA026444

PATIENT

DRUGS (13)
  1. INFLECTRA [Suspect]
     Active Substance: INFLIXIMAB-DYYB
     Dosage: 400 MG EVERY 6 WEEKS
     Route: 042
     Dates: start: 20200331
  2. PREDNISONE. [Concomitant]
     Active Substance: PREDNISONE
     Dosage: TAPER OFF IN 3/52 5 MG AS OF 08NOV2019
     Route: 048
  3. INFLECTRA [Suspect]
     Active Substance: INFLIXIMAB-DYYB
     Dosage: 400 MG EVERY Q 0, 2, 6 WEEKS THEN EVERY 4 WEEKS
     Route: 042
     Dates: start: 20200526
  4. INFLECTRA [Suspect]
     Active Substance: INFLIXIMAB-DYYB
     Indication: CROHN^S DISEASE
     Dosage: 400 MG, Q 0, 2, 6 WEEKS, THEN EVERY 8 WEEKS
     Route: 042
     Dates: start: 20191112, end: 20200220
  5. INFLECTRA [Suspect]
     Active Substance: INFLIXIMAB-DYYB
     Dosage: 400 MG EVERY 6 WEEKS
     Route: 042
     Dates: start: 20200512
  6. PREDNISONE. [Concomitant]
     Active Substance: PREDNISONE
     Dosage: TAPER OFF IN 3/52 5 MG AS OF 08NOV2019
     Route: 048
  7. GAVISCON [Concomitant]
     Active Substance: ALUMINUM HYDROXIDE\MAGNESIUM CARBONATE
     Indication: GASTROOESOPHAGEAL REFLUX DISEASE
     Dosage: UNK, AS NEEDED
     Route: 065
  8. INFLECTRA [Suspect]
     Active Substance: INFLIXIMAB-DYYB
     Dosage: 400 MG, Q 0, 2, 6 WEEKS, THEN EVERY 8 WEEKS
     Route: 042
     Dates: start: 20191125
  9. TECTA [Concomitant]
     Active Substance: PANTOPRAZOLE MAGNESIUM
     Indication: GASTROOESOPHAGEAL REFLUX DISEASE
     Dosage: UNK, 2X/DAY
     Route: 065
  10. TYLENOL EXTRA STRENGTH [Concomitant]
     Active Substance: ACETAMINOPHEN
     Dosage: UNK, AS NEEDED
     Route: 065
  11. INFLECTRA [Suspect]
     Active Substance: INFLIXIMAB-DYYB
     Dosage: 400 MG EVERY Q 0, 2, 6 WEEKS THEN EVERY 4 WEEKS
     Route: 042
     Dates: start: 20200608
  12. INFLECTRA [Suspect]
     Active Substance: INFLIXIMAB-DYYB
     Dosage: 400 MG, Q 0, 2, 6 WEEKS, THEN EVERY 8 WEEKS
     Route: 042
     Dates: start: 20191223
  13. INFLECTRA [Suspect]
     Active Substance: INFLIXIMAB-DYYB
     Dosage: 400 MG, Q 0, 2, 6 WEEKS, THEN EVERY 8 WEEKS
     Route: 042
     Dates: start: 20200220

REACTIONS (51)
  - Hypersomnia [Unknown]
  - Burning sensation [Unknown]
  - Sensation of blood flow [Unknown]
  - Urticaria [Not Recovered/Not Resolved]
  - Oropharyngeal pain [Recovering/Resolving]
  - Rhinorrhoea [Recovering/Resolving]
  - Sinus congestion [Not Recovered/Not Resolved]
  - Presyncope [Recovered/Resolved]
  - Gastrointestinal sounds abnormal [Unknown]
  - Eyelids pruritus [Unknown]
  - Haemorrhage [Unknown]
  - Drug level below therapeutic [Unknown]
  - Headache [Not Recovered/Not Resolved]
  - Skin fissures [Unknown]
  - Skin irritation [Unknown]
  - Loss of consciousness [Unknown]
  - Cough [Recovering/Resolving]
  - Gastrooesophageal reflux disease [Unknown]
  - Anxiety [Unknown]
  - Asthenia [Unknown]
  - Condition aggravated [Unknown]
  - Malaise [Unknown]
  - Abdominal discomfort [Unknown]
  - Anal fissure [Unknown]
  - Pruritus [Unknown]
  - Discomfort [Unknown]
  - Erythema [Unknown]
  - Condition aggravated [Not Recovered/Not Resolved]
  - Dizziness [Unknown]
  - Sleep disorder [Unknown]
  - Vomiting [Unknown]
  - Acne [Unknown]
  - Constipation [Unknown]
  - Therapeutic response shortened [Unknown]
  - Nasopharyngitis [Recovering/Resolving]
  - Rectal spasm [Unknown]
  - Proctalgia [Unknown]
  - Nausea [Recovering/Resolving]
  - Diarrhoea [Unknown]
  - Hyperhidrosis [Unknown]
  - Sinus headache [Unknown]
  - Eyelid skin dryness [Unknown]
  - Off label use [Unknown]
  - Intentional product use issue [Unknown]
  - Anorectal disorder [Unknown]
  - Disease recurrence [Unknown]
  - Condition aggravated [Unknown]
  - Middle insomnia [Unknown]
  - Fatigue [Recovering/Resolving]
  - Aphthous ulcer [Recovered/Resolved]
  - Ear disorder [Unknown]

NARRATIVE: CASE EVENT DATE: 20191112
